FAERS Safety Report 5445800-4 (Version None)
Quarter: 2007Q3

REPORT INFORMATION
  Report Type: 
  Country: None (occurrence: None)
  Receive Date: 20070906
  Receipt Date: 20070828
  Transmission Date: 20080115
  Serious: Yes (Hospitalization, Other)
  Sender: FDA-Public Use
  Company Number: BE-ABBOTT-07P-013-0415508-00

PATIENT
  Age: 46 Year
  Sex: Male

DRUGS (4)
  1. VALPROATE SODIUM [Suspect]
     Indication: GRAND MAL CONVULSION
  2. VALPROATE SODIUM [Suspect]
     Indication: STATUS EPILEPTICUS
  3. MEROPENEM [Interacting]
     Indication: INFECTION
  4. PHENOBARBITAL TAB [Concomitant]
     Indication: GRAND MAL CONVULSION
     Dosage: NOT REPORTED

REACTIONS (3)
  - DRUG INTERACTION [None]
  - DRUG LEVEL DECREASED [None]
  - ELECTROENCEPHALOGRAM ABNORMAL [None]
